FAERS Safety Report 5542907-8 (Version None)
Quarter: 2007Q4

REPORT INFORMATION
  Report Type: 
  Country: None (occurrence: None)
  Receive Date: 20071210
  Receipt Date: 20071128
  Transmission Date: 20080405
  Serious: Yes (Other)
  Sender: FDA-Public Use
  Company Number: US-PFIZER INC-2007100633

PATIENT
  Sex: Female

DRUGS (5)
  1. LYRICA [Suspect]
     Indication: PAIN
     Dates: start: 20071019, end: 20070101
  2. LYRICA [Suspect]
     Indication: SLEEP DISORDER
  3. LEVOXYL [Concomitant]
  4. ZOCOR [Concomitant]
  5. NAPROSYN [Concomitant]

REACTIONS (6)
  - ABASIA [None]
  - ANAEMIA [None]
  - EYE SWELLING [None]
  - OCULAR HYPERAEMIA [None]
  - SWELLING FACE [None]
  - WEIGHT INCREASED [None]
